FAERS Safety Report 7764071-7 (Version None)
Quarter: 2011Q3

REPORT INFORMATION
  Report Type: 
  Country: None (occurrence: None)
  Receive Date: 20110921
  Receipt Date: 20110912
  Transmission Date: 20111222
  Serious: Yes (Other)
  Sender: FDA-Public Use
  Company Number: IT-JNJFOC-20110905544

PATIENT
  Age: 13 Year
  Sex: Male
  Weight: 35 kg

DRUGS (2)
  1. TOPAMAX [Suspect]
     Indication: PRODUCT USED FOR UNKNOWN INDICATION
     Route: 048
  2. INDAPAMIDE [Suspect]
     Indication: PRODUCT USED FOR UNKNOWN INDICATION
     Route: 065

REACTIONS (4)
  - HYPOTENSION [None]
  - HEADACHE [None]
  - DRUG ABUSE [None]
  - BRADYCARDIA [None]
